FAERS Safety Report 8480367-8 (Version None)
Quarter: 2012Q3

REPORT INFORMATION
  Report Type: 
  Country: None (occurrence: None)
  Receive Date: 20120702
  Receipt Date: 20120626
  Transmission Date: 20120928
  Serious: Yes (Other)
  Sender: FDA-Public Use
  Company Number: US-AMGEN-USASP2011030896

PATIENT
  Age: 59 Year
  Sex: Female
  Weight: 93.878 kg

DRUGS (3)
  1. NPLATE [Suspect]
     Indication: IDIOPATHIC THROMBOCYTOPENIC PURPURA
     Dosage: 8.5 MUG/KG, QWK
     Route: 058
     Dates: start: 20101231, end: 20110419
  2. ELTROMBOPAG [Concomitant]
  3. CORTICOSTEROIDS [Concomitant]

REACTIONS (8)
  - IRON DEFICIENCY ANAEMIA [None]
  - CANDIDIASIS [None]
  - OEDEMA MOUTH [None]
  - HAEMORRHAGE [None]
  - SWOLLEN TONGUE [None]
  - DIABETES MELLITUS [None]
  - THERAPEUTIC RESPONSE DECREASED [None]
  - DIABETIC NEUROPATHY [None]
